FAERS Safety Report 10278280 (Version 3)
Quarter: 2015Q2

REPORT INFORMATION
  Report Type: Spontaneous
  Country: US (occurrence: US)
  Receive Date: 20140704
  Receipt Date: 20150428
  Transmission Date: 20150821
  Serious: No
  Sender: FDA-Public Use
  Company Number: US-PFIZER INC-2014182048

PATIENT
  Age: 53 Year
  Sex: Female
  Weight: 109 kg

DRUGS (4)
  1. ZIPRASIDONE MESILATE [Suspect]
     Active Substance: ZIPRASIDONE
     Indication: BIPOLAR DISORDER
     Dosage: 160 MG DAILY [TWO 60 MG AND TWO 20 MG, DAILY]
     Dates: start: 2013, end: 2013
  2. LISINOPRIL. [Concomitant]
     Active Substance: LISINOPRIL
     Indication: HYPERTENSION
     Dosage: 10 MG, DAILY
  3. SIMVASTATIN. [Concomitant]
     Active Substance: SIMVASTATIN
     Indication: BLOOD CHOLESTEROL INCREASED
     Dosage: 20 MG, DAILY
  4. ZIPRASIDONE MESILATE [Suspect]
     Active Substance: ZIPRASIDONE
     Dosage: 120 MG DAILY [TWO 60 MG DAILY]
     Dates: start: 2013, end: 2013

REACTIONS (6)
  - Vomiting [Unknown]
  - Diarrhoea [Recovered/Resolved]
  - Malaise [Unknown]
  - Migraine [Unknown]
  - Headache [Recovered/Resolved]
  - Drug ineffective [Unknown]

NARRATIVE: CASE EVENT DATE: 201307
